FAERS Safety Report 23421575 (Version 5)
Quarter: 2024Q1

REPORT INFORMATION
  Report Type: Report from Study
  Country: NL (occurrence: NL)
  Receive Date: 20240119
  Receipt Date: 20240204
  Transmission Date: 20240409
  Serious: Yes (Hospitalization, Other)
  Sender: FDA-Public Use
  Company Number: NL-ABBVIE-5591465

PATIENT
  Age: 79 Year
  Sex: Male

DRUGS (6)
  1. CARBIDOPA\LEVODOPA [Suspect]
     Active Substance: CARBIDOPA\LEVODOPA
     Indication: Parkinson^s disease
     Dosage: DURATION TEXT: REMAINS AT 16 HOURS
     Route: 050
  2. CARBIDOPA\LEVODOPA [Suspect]
     Active Substance: CARBIDOPA\LEVODOPA
     Dosage: MD 11.5 ML; CD 2.8 ML/H; ED 2.0 ML?REMAINS AT 16 HOURS
     Route: 050
     Dates: start: 20230110, end: 20230210
  3. CARBIDOPA\LEVODOPA [Suspect]
     Active Substance: CARBIDOPA\LEVODOPA
     Dosage: LAST ADMIN DATE: 2022
     Route: 050
     Dates: start: 20221101
  4. CARBIDOPA\LEVODOPA [Suspect]
     Active Substance: CARBIDOPA\LEVODOPA
     Dosage: MD 11.5 ML;?REMAINS AT 16 HOURS
     Route: 050
     Dates: start: 20221206, end: 20230110
  5. CARBIDOPA\LEVODOPA [Suspect]
     Active Substance: CARBIDOPA\LEVODOPA
     Dosage: MD 11.5 ML; CD 2.8 ML/H; ED 2.0 ML?REMAINS AT 16 HOURS, LAST ADMIN DATE: 2023
     Route: 050
     Dates: start: 20230531
  6. CARBIDOPA\LEVODOPA [Suspect]
     Active Substance: CARBIDOPA\LEVODOPA
     Dosage: MD 11.5 ML; CD 2.8 ML/H; ED 2.0 ML?REMAINS AT 16 HOURS
     Route: 050
     Dates: start: 20230210, end: 20230531

REACTIONS (5)
  - Cervical vertebral fracture [Not Recovered/Not Resolved]
  - Device issue [Not Recovered/Not Resolved]
  - Fall [Unknown]
  - Device issue [Recovered/Resolved]
  - Gastrointestinal motility disorder [Recovering/Resolving]

NARRATIVE: CASE EVENT DATE: 20240114
